FAERS Safety Report 13828909 (Version 5)
Quarter: 2019Q1

REPORT INFORMATION
  Report Type: Spontaneous
  Country: IT (occurrence: IT)
  Receive Date: 20170803
  Receipt Date: 20190320
  Transmission Date: 20190417
  Serious: Yes (Hospitalization, Other)
  Sender: FDA-Public Use
  Company Number: IT-AUROBINDO-AUR-APL-2017-38349

PATIENT

DRUGS (8)
  1. ALCOHOL. [Interacting]
     Active Substance: ALCOHOL
     Indication: PRODUCT USED FOR UNKNOWN INDICATION
     Dosage: WINE ()
     Dates: start: 20170629, end: 20170629
  2. TALOFEN [Suspect]
     Active Substance: PROMAZINE HYDROCHLORIDE
     Dosage: 60 GTT, UNK
  3. LORAZEPAM 2.5MG TABLETS [Suspect]
     Active Substance: LORAZEPAM
     Indication: PRODUCT USED FOR UNKNOWN INDICATION
     Dosage: 125 MG, TOTAL
     Route: 048
     Dates: start: 20170629, end: 20170629
  4. ETHANOL ABSOLUTE [Suspect]
     Active Substance: ALCOHOL
     Indication: PRODUCT USED FOR UNKNOWN INDICATION
     Dosage: UNK
     Route: 065
     Dates: start: 20170629, end: 20170629
  5. TALOFEN [Suspect]
     Active Substance: PROMAZINE HYDROCHLORIDE
     Indication: PRODUCT USED FOR UNKNOWN INDICATION
     Dosage: 90 ML, TOTAL; (STRENGTH: 4G/100 ML) ; IN TOTAL
     Route: 048
     Dates: start: 20170629, end: 20170629
  6. VENLAFAXINE [Suspect]
     Active Substance: VENLAFAXINE HYDROCHLORIDE
     Indication: PRODUCT USED FOR UNKNOWN INDICATION
     Dosage: 1650 MG, TOTAL ; IN TOTAL
     Route: 048
     Dates: start: 20170629, end: 20170629
  7. VENLAFAXINE [Suspect]
     Active Substance: VENLAFAXINE HYDROCHLORIDE
     Indication: PRODUCT USED FOR UNKNOWN INDICATION
  8. EUTIROX [Suspect]
     Active Substance: LEVOTHYROXINE SODIUM
     Indication: PRODUCT USED FOR UNKNOWN INDICATION
     Dosage: 3375 MG, TOTAL ; IN TOTAL
     Route: 048
     Dates: start: 20170629, end: 20170629

REACTIONS (5)
  - Drug abuse [Recovered/Resolved]
  - Drug use disorder [Recovered/Resolved]
  - Intentional self-injury [Recovered/Resolved]
  - Slow speech [Recovered/Resolved]
  - Alcohol interaction [Recovered/Resolved]

NARRATIVE: CASE EVENT DATE: 20170630
